FAERS Safety Report 19803792 (Version 2)
Quarter: 2021Q3

REPORT INFORMATION
  Report Type: Spontaneous
  Country: PK (occurrence: PK)
  Receive Date: 20210908
  Receipt Date: 20210914
  Transmission Date: 20211014
  Serious: Yes (Hospitalization, Other)
  Sender: FDA-Public Use
  Company Number: PK-ASTRAZENECA-2021A709408

PATIENT
  Age: 55 Year
  Sex: Female

DRUGS (4)
  1. LEVOFLOXACIN. [Concomitant]
     Active Substance: LEVOFLOXACIN
     Dosage: 18 UNITS AT BEDTIME
  2. INSULIN GLARGINE [Concomitant]
     Active Substance: INSULIN GLARGINE
     Dosage: 18 UNITS AT BEDTIME
  3. DAPAGLIFLOZIN. [Suspect]
     Active Substance: DAPAGLIFLOZIN
     Indication: DIABETES MELLITUS
     Route: 048
  4. GLIMEPIRIDE. [Concomitant]
     Active Substance: GLIMEPIRIDE
     Dosage: 2 MG

REACTIONS (1)
  - Euglycaemic diabetic ketoacidosis [Recovered/Resolved]
